FAERS Safety Report 14327229 (Version 1)
Quarter: 2017Q4

REPORT INFORMATION
  Report Type: Spontaneous
  Country: US (occurrence: US)
  Receive Date: 20171226
  Receipt Date: 20171226
  Transmission Date: 20180321
  Serious: Yes (Other)
  Sender: FDA-Public Use
  Company Number: None

PATIENT
  Age: 39 Year
  Sex: Male
  Weight: 114.76 kg

DRUGS (1)
  1. DISULFIRAM. [Suspect]
     Active Substance: DISULFIRAM
     Indication: ALCOHOL ABUSE
     Route: 048
     Dates: start: 20170902, end: 20170907

REACTIONS (7)
  - Vomiting [None]
  - Fatigue [None]
  - Liver function test increased [None]
  - Ocular icterus [None]
  - Liver injury [None]
  - Diarrhoea [None]
  - Nausea [None]

NARRATIVE: CASE EVENT DATE: 20170913
